FAERS Safety Report 4847409-X (Version None)
Quarter: 2005Q4

REPORT INFORMATION
  Report Type: 
  Country: None (occurrence: None)
  Receive Date: 20051205
  Receipt Date: 20051130
  Transmission Date: 20060501
  Serious: Yes (Other)
  Sender: FDA-Public Use
  Company Number: 2005AP000948

PATIENT
  Age: 76 Year
  Sex: Male

DRUGS (2)
  1. TERAZOSIN HCL [Suspect]
     Indication: BENIGN PROSTATIC HYPERPLASIA
     Dosage: 10 MG; HS; PO
     Route: 048
     Dates: start: 20051001, end: 20051117
  2. PRILOSEC [Concomitant]

REACTIONS (4)
  - DYSPEPSIA [None]
  - FAECES DISCOLOURED [None]
  - PALPITATIONS [None]
  - PHARMACEUTICAL PRODUCT COMPLAINT [None]
